FAERS Safety Report 9512181 (Version 2)
Quarter: 2013Q4

REPORT INFORMATION
  Report Type: Spontaneous
  Country: FR (occurrence: FR)
  Receive Date: 20130910
  Receipt Date: 20131113
  Transmission Date: 20140711
  Serious: Yes (Hospitalization)
  Sender: FDA-Public Use
  Company Number: FR-JNJFOC-20130903142

PATIENT
  Age: 77 Year
  Sex: Female

DRUGS (6)
  1. XARELTO [Suspect]
     Indication: THROMBOSIS PROPHYLAXIS
     Route: 048
     Dates: end: 2013
  2. XARELTO [Suspect]
     Indication: PULMONARY EMBOLISM
     Route: 048
     Dates: end: 2013
  3. INEGY [Concomitant]
     Route: 065
  4. EFFEXOR [Concomitant]
     Route: 065
  5. APROVEL [Concomitant]
     Route: 065
  6. LEVOTHYROX [Concomitant]
     Route: 065

REACTIONS (2)
  - Pulmonary embolism [Recovering/Resolving]
  - Drug ineffective [Unknown]
